FAERS Safety Report 4617724-3 (Version None)
Quarter: 2005Q1

REPORT INFORMATION
  Report Type: 
  Country: None (occurrence: None)
  Receive Date: 20050324
  Receipt Date: 20050317
  Transmission Date: 20050727
  Serious: Yes (Death)
  Sender: FDA-Public Use
  Company Number: US-ROCHE-398901

PATIENT
  Age: 36 Year
  Sex: Male
  Weight: 62.8 kg

DRUGS (10)
  1. RIBAVIRIN [Suspect]
     Dosage: 400 MG AM AND 600 MG PM.
     Route: 065
     Dates: start: 20041221, end: 20050224
  2. PEG-INTERFERON ALFA 2A (RO 25-8310) [Suspect]
     Route: 058
     Dates: start: 20041221, end: 20050221
  3. D4T [Concomitant]
     Dosage: DOSE REDUCED TO 30 MG TWICE A DAY
     Route: 048
     Dates: start: 19960615, end: 20041113
  4. DDI [Concomitant]
     Route: 048
     Dates: start: 19960615
  5. NELFINAVIR [Concomitant]
     Route: 048
     Dates: start: 19990515
  6. NEUPOGEN [Concomitant]
     Route: 058
     Dates: start: 20050216
  7. VITAMIN E [Concomitant]
     Route: 048
     Dates: start: 20020615
  8. MEGACE [Concomitant]
     Route: 048
     Dates: start: 20040916
  9. ENDODAN [Concomitant]
     Dosage: DOSING AMOUNT REPORTED AS 244/325.  ON AN AS NEEDED BASIS
     Route: 048
     Dates: start: 20040529
  10. MYCELEX [Concomitant]
     Dates: start: 20050214

REACTIONS (2)
  - NEUTROPENIA [None]
  - PANCREATITIS [None]
